FAERS Safety Report 15710409 (Version 1)
Quarter: 2018Q4

REPORT INFORMATION
  Report Type: Spontaneous
  Country: US (occurrence: US)
  Receive Date: 20181211
  Receipt Date: 20181211
  Transmission Date: 20190205
  Serious: Yes (Other)
  Sender: FDA-Public Use
  Company Number: US-LPDUSPRD-20171782

PATIENT
  Age: 33 Year
  Sex: Male
  Weight: 87 kg

DRUGS (15)
  1. RENVELA [Concomitant]
     Active Substance: SEVELAMER CARBONATE
     Dosage: 800 MG, 3 IN 1 D
     Route: 048
     Dates: start: 20161122
  2. MIRCERA [Suspect]
     Active Substance: METHOXY POLYETHYLENE GLYCOL-EPOETIN BETA
     Dosage: 30 MCG
     Route: 040
     Dates: start: 20171113, end: 20171113
  3. EFFIENT [Concomitant]
     Active Substance: PRASUGREL HYDROCHLORIDE
     Dosage: 10 MG, 1 IN 1 D
     Route: 048
     Dates: start: 20170118
  4. METOPROLOL. [Concomitant]
     Active Substance: METOPROLOL
     Dosage: 100 MG, EVERY BEDTIME
     Route: 048
     Dates: start: 20171103
  5. ARANESP [Concomitant]
     Active Substance: DARBEPOETIN ALFA
     Dosage: 20 MCG
     Route: 040
     Dates: start: 20171222
  6. OMEPRAZOLE. [Concomitant]
     Active Substance: OMEPRAZOLE
     Dosage: 20 MG, 2 IN 1 D
     Route: 048
     Dates: start: 20160926
  7. AURYXIA [Concomitant]
     Active Substance: TETRAFERRIC TRICITRATE DECAHYDRATE
     Dosage: 210 MG, 3 IN 1 D
     Route: 048
     Dates: start: 20171103
  8. NOVOLOG [Concomitant]
     Active Substance: INSULIN ASPART
     Dosage: 1 IN 1 D
     Route: 058
     Dates: start: 20170526
  9. VENOFER [Suspect]
     Active Substance: IRON SUCROSE
     Dosage: 50 MG, 1 IN 1 WEEK
     Route: 040
     Dates: start: 20160926
  10. METOCLOPRAMIDE. [Concomitant]
     Active Substance: METOCLOPRAMIDE
     Dosage: 5 MG, 30 MINUTES BEFORE MEALS
     Route: 048
     Dates: start: 20160926
  11. NEPHRO VITE RX [Concomitant]
     Active Substance: ASCORBIC ACID\BIOTIN\CALCIUM PANTOTHENATE\CYANOCOBALAMIN\FOLIC ACID\NIACINAMIDE\PYRIDOXINE HYDROCHLORIDE\RIBOFLAVIN\THIAMINE MONONITRATE
     Dosage: 1 DOSAGE FORMS, 1 IN 1 D
     Route: 048
     Dates: start: 20160926
  12. ATORVASTATIN CALCIUM. [Concomitant]
     Active Substance: ATORVASTATIN CALCIUM
     Dosage: 20 MG, 1 IN 1 D
     Route: 048
     Dates: start: 20160926
  13. ZEMPLAR [Concomitant]
     Active Substance: PARICALCITOL
     Dosage: 3 MCG
     Route: 042
     Dates: start: 20171201
  14. HYDRALAZINE [Concomitant]
     Active Substance: HYDRALAZINE HYDROCHLORIDE
     Dosage: 50 MG, 2 IN 1 D
     Route: 048
     Dates: start: 20170526
  15. LANTUS [Concomitant]
     Active Substance: INSULIN GLARGINE
     Dosage: 30 MG, 1 IN 1 D
     Route: 058
     Dates: start: 20170526

REACTIONS (1)
  - Anaphylactic reaction [Unknown]

NARRATIVE: CASE EVENT DATE: 20171127
